FAERS Safety Report 6165420-6 (Version None)
Quarter: 2009Q2

REPORT INFORMATION
  Report Type: 
  Country: None (occurrence: None)
  Receive Date: 20090423
  Receipt Date: 20090420
  Transmission Date: 20091009
  Serious: Yes (Other)
  Sender: FDA-Public Use
  Company Number: US-BRISTOL-MYERS SQUIBB COMPANY-14596282

PATIENT
  Sex: Female

DRUGS (3)
  1. ERBITUX [Suspect]
     Indication: HEAD AND NECK CANCER
     Dosage: TREATMENT WEEK 4
  2. CISPLATIN [Suspect]
     Indication: HEAD AND NECK CANCER
  3. TAXOTERE [Suspect]
     Indication: HEAD AND NECK CANCER

REACTIONS (1)
  - PANCREATITIS [None]
